FAERS Safety Report 9189221 (Version 1)
Quarter: 2013Q1

REPORT INFORMATION
  Report Type: Spontaneous
  Country: US (occurrence: None)
  Receive Date: 20130321
  Receipt Date: 20130321
  Transmission Date: 20140127
  Serious: Yes (Life-Threatening)
  Sender: FDA-Public Use
  Company Number: None

PATIENT
  Age: 70 Year
  Sex: Male

DRUGS (1)
  1. BENLYSTA [Suspect]
     Indication: CONNECTIVE TISSUE DISORDER
     Dosage: 809MG  Q4W  IV
     Route: 042
     Dates: start: 20121227

REACTIONS (1)
  - Convulsion [None]
